FAERS Safety Report 9674626 (Version 4)
Quarter: 2014Q2

REPORT INFORMATION
  Report Type: Spontaneous
  Country: GB (occurrence: GB)
  Receive Date: 20131107
  Receipt Date: 20140605
  Transmission Date: 20141212
  Serious: Yes (Other)
  Sender: FDA-Public Use
  Company Number: GB-DRREDDYS-GER/UKI/13/0033291

PATIENT
  Age: 32 Year
  Sex: Female
  Weight: 50 kg

DRUGS (5)
  1. SERTRALINE [Suspect]
     Indication: ANXIETY
     Route: 048
     Dates: start: 20120407, end: 20120416
  2. SERTRALINE [Suspect]
     Indication: SOCIAL PHOBIA
  3. SERTRALINE [Suspect]
     Indication: ERYTHEMA
  4. AMITRIPTYLINE [Concomitant]
     Indication: PRODUCT USED FOR UNKNOWN INDICATION
     Dates: start: 20120412
  5. DIANETTE [Concomitant]
     Indication: PRODUCT USED FOR UNKNOWN INDICATION

REACTIONS (6)
  - Fear [Recovered/Resolved with Sequelae]
  - Paranoia [Recovered/Resolved with Sequelae]
  - Phobia [Recovered/Resolved with Sequelae]
  - Psychotic disorder [Recovered/Resolved with Sequelae]
  - Insomnia [Recovered/Resolved with Sequelae]
  - Hallucination, visual [Recovered/Resolved with Sequelae]
